FAERS Safety Report 7707878-4 (Version None)
Quarter: 2011Q3

REPORT INFORMATION
  Report Type: 
  Country: None (occurrence: None)
  Receive Date: 20110824
  Receipt Date: 20110810
  Transmission Date: 20111222
  Serious: Yes (Other)
  Sender: FDA-Public Use
  Company Number: US-ELI_LILLY_AND_COMPANY-US201105008145

PATIENT
  Sex: Female

DRUGS (2)
  1. FORTEO [Suspect]
     Indication: OSTEOPOROSIS
     Dosage: 20 UG, QD
     Dates: start: 20110301
  2. FORTEO [Suspect]
     Dosage: 20 UG, QD
     Dates: end: 20110501

REACTIONS (5)
  - CONCUSSION [None]
  - HEAD INJURY [None]
  - SYNCOPE [None]
  - HAEMATOMA [None]
  - LIPOMA [None]
